FAERS Safety Report 9234251 (Version 2)
Quarter: 2013Q3

REPORT INFORMATION
  Report Type: Spontaneous
  Country: FR (occurrence: FR)
  Receive Date: 20130416
  Receipt Date: 20130814
  Transmission Date: 20140515
  Serious: Yes (Other)
  Sender: FDA-Public Use
  Company Number: PHHY2013FR035578

PATIENT
  Age: 83 Year
  Sex: Male

DRUGS (10)
  1. TAMSULOSIN SANDOZ [Suspect]
     Dosage: UNK
     Dates: start: 201302
  2. NEBILOX [Concomitant]
  3. TAHOR [Concomitant]
  4. NITRODERM [Concomitant]
  5. KARDEGIC [Concomitant]
  6. INEXIUM//ESOMEPRAZOLE SODIUM [Concomitant]
  7. DIFFU K [Concomitant]
  8. LASILIX [Concomitant]
  9. PLAVIX [Concomitant]
  10. MONICOR [Concomitant]

REACTIONS (1)
  - Porphyria [Unknown]
